FAERS Safety Report 8880235 (Version 1)
Quarter: 2012Q4

REPORT INFORMATION
  Report Type: 
  Country: BD (occurrence: BD)
  Receive Date: 20121101
  Receipt Date: 20121101
  Transmission Date: 20130627
  Serious: Yes (Death)
  Sender: FDA-Public Use
  Company Number: PHHY2012BD098648

PATIENT
  Age: 63 Year
  Sex: Female

DRUGS (1)
  1. EXELON [Suspect]
     Indication: DEMENTIA
     Dosage: 3 mg, daily
     Route: 048
     Dates: start: 201105

REACTIONS (4)
  - Nervous system disorder [Fatal]
  - Diabetes mellitus [Fatal]
  - Renal disorder [Fatal]
  - Blood pressure abnormal [Fatal]
